FAERS Safety Report 6264235-8 (Version None)
Quarter: 2009Q3

REPORT INFORMATION
  Report Type: 
  Country: None (occurrence: None)
  Receive Date: 20090708
  Receipt Date: 20090708
  Transmission Date: 20100115
  Serious: Yes (Other)
  Sender: FDA-Public Use
  Company Number: None

PATIENT
  Age: 27 Year
  Sex: Female
  Weight: 83.9154 kg

DRUGS (4)
  1. ZICAM COLD REMEDY GEL SWABS  ZICAM [Suspect]
     Indication: NASAL CONGESTION
     Dosage: 1 TUBE EVERY 4 HOURS NASAL
     Route: 045
     Dates: start: 20081015, end: 20081020
  2. ZICAM COLD REMEDY GEL SWABS  ZICAM [Suspect]
     Indication: NASOPHARYNGITIS
     Dosage: 1 TUBE EVERY 4 HOURS NASAL
     Route: 045
     Dates: start: 20081015, end: 20081020
  3. ZICAM COLD REMEDY GEL SWABS  ZICAM [Suspect]
     Indication: NASAL CONGESTION
     Dosage: 1 TUBE EVERY 4 HOURS NASAL
     Route: 045
     Dates: start: 20081230, end: 20090102
  4. ZICAM COLD REMEDY GEL SWABS  ZICAM [Suspect]
     Indication: NASOPHARYNGITIS
     Dosage: 1 TUBE EVERY 4 HOURS NASAL
     Route: 045
     Dates: start: 20081230, end: 20090102

REACTIONS (2)
  - ANOSMIA [None]
  - PAROSMIA [None]
